FAERS Safety Report 7654851-0 (Version None)
Quarter: 2011Q3

REPORT INFORMATION
  Report Type: 
  Country: None (occurrence: None)
  Receive Date: 20110803
  Receipt Date: 20110803
  Transmission Date: 20111222
  Serious: No
  Sender: FDA-Public Use
  Company Number: None

PATIENT
  Sex: Male

DRUGS (1)
  1. ZORTRESS [Suspect]
     Dosage: 0.25 MG TAKE 1 TABLET BY MOUTH TWICE A DAY 0.25MG PO
     Route: 048

REACTIONS (1)
  - COUGH [None]
